FAERS Safety Report 5106467-8 (Version None)
Quarter: 2006Q3

REPORT INFORMATION
  Report Type: 
  Country: None (occurrence: None)
  Receive Date: 20060918
  Receipt Date: 20060524
  Transmission Date: 20061208
  Serious: Yes (Life-Threatening, Hospitalization)
  Sender: FDA-Public Use
  Company Number: FR-BAYER-200610476BFR

PATIENT
  Age: 82 Year
  Sex: Male
  Weight: 63 kg

DRUGS (24)
  1. SORAFENIB [Suspect]
     Indication: METASTATIC RENAL CELL CARCINOMA
     Dosage: UNIT DOSE: 200 MG
     Route: 048
     Dates: start: 20050131, end: 20050627
  2. SORAFENIB [Suspect]
     Dosage: UNIT DOSE: 200 MG
     Route: 048
     Dates: start: 20050627
  3. SORAFENIB [Suspect]
     Dosage: TOTAL DAILY DOSE: 400 MG  UNIT DOSE: 200 MG
     Route: 048
     Dates: start: 20060113, end: 20060113
  4. SORAFENIB [Suspect]
     Dosage: TOTAL DAILY DOSE: 400 MG  UNIT DOSE: 200 MG
     Route: 048
     Dates: start: 20060313, end: 20060313
  5. SORAFENIB [Suspect]
     Dosage: TOTAL DAILY DOSE: 800 MG  UNIT DOSE: 200 MG
     Route: 048
     Dates: start: 20060314, end: 20060508
  6. SORAFENIB [Suspect]
     Dosage: TOTAL DAILY DOSE: 400 MG  UNIT DOSE: 200 MG
     Route: 048
     Dates: start: 20060509, end: 20060509
  7. SORAFENIB [Suspect]
     Dosage: TOTAL DAILY DOSE: 400 MG  UNIT DOSE: 200 MG
     Route: 048
     Dates: start: 20060521, end: 20060521
  8. SORAFENIB [Suspect]
     Dosage: TOTAL DAILY DOSE: 800 MG  UNIT DOSE: 200 MG
     Route: 048
     Dates: start: 20060510, end: 20060520
  9. SORAFENIB [Suspect]
     Dosage: TOTAL DAILY DOSE: 400 MG  UNIT DOSE: 200 MG
     Route: 048
     Dates: start: 20060509, end: 20060509
  10. SORAFENIB [Suspect]
     Dosage: TOTAL DAILY DOSE: 400 MG  UNIT DOSE: 200 MG
     Route: 048
     Dates: start: 20060313, end: 20060313
  11. SORAFENIB [Suspect]
     Dosage: TOTAL DAILY DOSE: 800 MG  UNIT DOSE: 200 MG
     Route: 048
     Dates: start: 20060114, end: 20060312
  12. XATRAL LP [Concomitant]
     Indication: BENIGN PROSTATIC HYPERPLASIA
     Dates: start: 20041201
  13. EXACYL [Concomitant]
     Indication: EPISTAXIS
     Dates: start: 20041201
  14. DICYNONE [Concomitant]
     Indication: EPISTAXIS
     Dates: start: 20041201
  15. TARKA LP [Concomitant]
     Indication: HYPERTENSION
     Dates: start: 20050308
  16. ULTRA-LEVURE [Concomitant]
     Indication: DIARRHOEA
     Dates: start: 20050623, end: 20060520
  17. SMECTA [Concomitant]
     Indication: DIARRHOEA
     Dates: start: 20051010
  18. DOLIPRANE [Concomitant]
     Indication: NECK PAIN
     Dates: start: 20060116, end: 20060301
  19. DI-ANTALVIC [Concomitant]
     Indication: ARTHRALGIA
     Dates: start: 20060301, end: 20060615
  20. MORPHINE [Concomitant]
     Indication: PAIN IN EXTREMITY
     Dates: start: 20060526, end: 20060526
  21. IMOVANE [Concomitant]
     Indication: ANXIETY
     Dates: start: 20050526, end: 20050527
  22. TRANXENE [Concomitant]
     Indication: ANXIETY
     Dates: start: 20060526, end: 20060601
  23. TRIFLUCAN [Concomitant]
     Indication: INFECTION PROPHYLAXIS
     Dates: start: 20060604, end: 20060615
  24. ACUPAN [Concomitant]
     Indication: ARTHRALGIA
     Dates: start: 20060527, end: 20060607

REACTIONS (1)
  - PULMONARY EMBOLISM [None]
